FAERS Safety Report 19384546 (Version 2)
Quarter: 2021Q2

REPORT INFORMATION
  Report Type: Spontaneous
  Country: US (occurrence: US)
  Receive Date: 20210608
  Receipt Date: 20210617
  Transmission Date: 20210717
  Serious: No
  Sender: FDA-Public Use
  Company Number: US-JNJFOC-20210610673

PATIENT
  Age: 19 Year
  Sex: Male

DRUGS (1)
  1. SPRAVATO [Suspect]
     Active Substance: ESKETAMINE
     Indication: MAJOR DEPRESSION
     Dates: start: 20210503

REACTIONS (2)
  - Treatment noncompliance [Unknown]
  - Sedation [Unknown]

NARRATIVE: CASE EVENT DATE: 20210603
